FAERS Safety Report 13445158 (Version 1)
Quarter: 2017Q2

REPORT INFORMATION
  Report Type: Spontaneous
  Country: US (occurrence: US)
  Receive Date: 20170414
  Receipt Date: 20170414
  Transmission Date: 20170830
  Serious: Yes (Hospitalization, Other)
  Sender: FDA-Public Use
  Company Number: US-TEVA-759738USA

PATIENT
  Age: 46 Year
  Sex: Female

DRUGS (1)
  1. BACLOFEN. [Suspect]
     Active Substance: BACLOFEN
     Indication: PRODUCT USED FOR UNKNOWN INDICATION
     Dosage: 10 MG TWICE A DAY AND 20 MG AT BEDTIME
     Route: 048

REACTIONS (4)
  - Acute kidney injury [Unknown]
  - Cholecystectomy [Unknown]
  - Pain [Unknown]
  - Biliary drainage [Unknown]

NARRATIVE: CASE EVENT DATE: 201605
